FAERS Safety Report 14227656 (Version 5)
Quarter: 2018Q2

REPORT INFORMATION
  Report Type: Spontaneous
  Country: IE (occurrence: IE)
  Receive Date: 20171127
  Receipt Date: 20180521
  Transmission Date: 20180711
  Serious: Yes (Other)
  Sender: FDA-Public Use
  Company Number: IE-PFIZER INC-2016315734

PATIENT
  Age: 96 Year
  Sex: Male

DRUGS (2)
  1. VANCOMYCIN [Suspect]
     Active Substance: VANCOMYCIN
     Indication: STAPHYLOCOCCAL INFECTION
     Dosage: UNK, (GIVEN 2 WEEKS COURSE OF VANCOMYCIN)
  2. MORPHINE SULFATE. [Interacting]
     Active Substance: MORPHINE SULFATE
     Indication: PAIN IN EXTREMITY
     Dosage: 2.5 MG, UNK
     Route: 048

REACTIONS (3)
  - Anaphylactoid reaction [Recovering/Resolving]
  - Angioedema [Recovering/Resolving]
  - Drug interaction [Recovering/Resolving]
